FAERS Safety Report 7468956-0 (Version None)
Quarter: 2011Q2

REPORT INFORMATION
  Report Type: 
  Country: None (occurrence: None)
  Receive Date: 20110429
  Receipt Date: 20110418
  Transmission Date: 20111010
  Serious: Yes (Life-Threatening)
  Sender: FDA-Public Use
  Company Number: 2011084018

PATIENT
  Age: 65 Year
  Sex: Female

DRUGS (7)
  1. PEMETREXED [Suspect]
     Dosage: 875 MG, INTRAVENOUS
     Route: 042
     Dates: start: 20110405, end: 20110405
  2. DOMEPERIDONE (DOMEPERIDONE) [Concomitant]
  3. CISPLATIN [Suspect]
     Dosage: 132 MG, INTRAVENOUS
     Route: 042
     Dates: start: 20110405, end: 20110405
  4. CIPROFLOXACIN [Concomitant]
  5. DALTEPARIN SODIUM [Suspect]
     Indication: LUNG NEOPLASM MALIGNANT
     Dosage: 5000 IU, 1X/DAY, SUBCUTANEOUS
     Route: 058
     Dates: start: 20110406, end: 20110415
  6. LANSOPRAZOLE [Concomitant]
  7. FOLIC ACID [Concomitant]

REACTIONS (4)
  - GASTROINTESTINAL HAEMORRHAGE [None]
  - SEPSIS [None]
  - ANAEMIA [None]
  - PYREXIA [None]
